FAERS Safety Report 10686590 (Version 1)
Quarter: 2015Q1

REPORT INFORMATION
  Report Type: Spontaneous
  Country: US (occurrence: US)
  Receive Date: 20150101
  Receipt Date: 20150101
  Transmission Date: 20150720
  Serious: Yes (Hospitalization)
  Sender: FDA-Public Use
  Company Number: US-BIOGENIDEC-2014BI137809

PATIENT
  Age: 65 Year
  Sex: Female

DRUGS (12)
  1. VITAMIN B [Concomitant]
     Active Substance: VITAMIN B
  2. TECFIDERA [Suspect]
     Active Substance: DIMETHYL FUMARATE
     Indication: MULTIPLE SCLEROSIS
     Route: 048
     Dates: start: 20140917
  3. DITROPAN XL [Concomitant]
     Active Substance: OXYBUTYNIN CHLORIDE
  4. BACLOFEN. [Concomitant]
     Active Substance: BACLOFEN
  5. OMEGA 3 [Concomitant]
     Active Substance: OMEGA-3 FATTY ACIDS
  6. BONIVA [Concomitant]
     Active Substance: IBANDRONATE SODIUM
  7. OSCAL 500/200 D-3 [Concomitant]
  8. ASPIRIN LOW DOSE [Concomitant]
     Active Substance: ASPIRIN
  9. CENTRUM [Concomitant]
     Active Substance: VITAMINS
  10. LISINOPRIL-HYDROCHLOROTHIAZIDE [Concomitant]
     Active Substance: HYDROCHLOROTHIAZIDE\LISINOPRIL
  11. EVISTA [Concomitant]
     Active Substance: RALOXIFENE HYDROCHLORIDE
  12. VITAMIN D [Concomitant]
     Active Substance: CHOLECALCIFEROL

REACTIONS (3)
  - Hemiparesis [Unknown]
  - Tremor [Unknown]
  - Gait disturbance [Unknown]

NARRATIVE: CASE EVENT DATE: 201412
